FAERS Safety Report 23662059 (Version 1)
Quarter: 2024Q1

REPORT INFORMATION
  Report Type: Spontaneous
  Country: US (occurrence: US)
  Receive Date: 20240322
  Receipt Date: 20240322
  Transmission Date: 20240409
  Serious: Yes (Hospitalization)
  Sender: FDA-Public Use
  Company Number: US-MYLANLABS-2024M1024777

PATIENT
  Age: 7 Decade
  Sex: Male

DRUGS (9)
  1. OCTREOTIDE [Interacting]
     Active Substance: OCTREOTIDE\OCTREOTIDE ACETATE
     Indication: Lymphatic fistula
     Dosage: 100 MILLIGRAM, TID,RECEIVED THREE TIMES A DAY
     Route: 058
  2. HYDROCHLOROTHIAZIDE [Suspect]
     Active Substance: HYDROCHLOROTHIAZIDE
     Indication: Hypocalcaemia
     Dosage: 12.5 MILLIGRAM, QD,VIA GASTROSTOMY TUBE
     Route: 065
  3. CALCIUM CARBONATE [Interacting]
     Active Substance: CALCIUM CARBONATE
     Indication: Hypocalcaemia
     Dosage: 12 GRAM, QD,VIA GASTROSTOMY TUBE
     Route: 065
  4. CALCITRIOL [Suspect]
     Active Substance: CALCITRIOL
     Indication: Hypocalcaemia
     Dosage: 2 MICROGRAM, QD,VIA GASTROSTOMY TUBE
     Route: 065
  5. CALCITRIOL [Suspect]
     Active Substance: CALCITRIOL
     Dosage: UNKVIA GASTROSTOMY TUBE
     Route: 065
  6. VITAMIN D2 [Suspect]
     Active Substance: ERGOCALCIFEROL
     Indication: Hypocalcaemia
     Dosage: 50000 INTERNATIONAL UNIT, QD,VIA GASTROSTOMY TUBE
     Route: 065
  7. CALCIUM CITRATE [Suspect]
     Active Substance: CALCIUM CITRATE
     Indication: Hypocalcaemia
     Dosage: UNK
     Route: 065
  8. CHOLECALCIFEROL [Suspect]
     Active Substance: CHOLECALCIFEROL
     Indication: Hypocalcaemia
     Dosage: UNK,VIA GASTROSTOMY TUBE
     Route: 065
  9. CALCIUM GLUBIONATE [Concomitant]
     Active Substance: CALCIUM GLUBIONATE
     Indication: Hypocalcaemia
     Dosage: UNK
     Route: 042

REACTIONS (5)
  - Hypocalcaemia [Unknown]
  - Drug ineffective for unapproved indication [Unknown]
  - Drug interaction [Unknown]
  - Therapeutic product effect decreased [Unknown]
  - Off label use [Unknown]
